FAERS Safety Report 22353497 (Version 2)
Quarter: 2023Q2

REPORT INFORMATION
  Report Type: Spontaneous
  Country: MY (occurrence: MY)
  Receive Date: 20230523
  Receipt Date: 20230523
  Transmission Date: 20230722
  Serious: Yes (Hospitalization)
  Sender: FDA-Public Use
  Company Number: MY-002147023-NVSC2023MY115250

PATIENT

DRUGS (1)
  1. RIBOCICLIB [Suspect]
     Active Substance: RIBOCICLIB
     Indication: Product used for unknown indication
     Dosage: 600 MG, QD  (3 WEEKS ON/ 1 WEEK OFF)
     Route: 048

REACTIONS (3)
  - Acute kidney injury [Unknown]
  - Blood urea increased [Unknown]
  - Platelet count decreased [Unknown]
